FAERS Safety Report 23730625 (Version 1)
Quarter: 2024Q2

REPORT INFORMATION
  Report Type: Other
  Country: US (occurrence: US)
  Receive Date: 20240411
  Receipt Date: 20240411
  Transmission Date: 20240716
  Serious: Yes (Death)
  Sender: FDA-Public Use
  Company Number: US-ALVOGEN-2024093395

PATIENT
  Age: 76 Year
  Sex: Male

DRUGS (4)
  1. GABAPENTIN [Suspect]
     Active Substance: GABAPENTIN
     Indication: Suicide attempt
     Route: 048
  2. AMLODIPINE [Suspect]
     Active Substance: AMLODIPINE BESYLATE
     Indication: Suicide attempt
     Route: 048
  3. MIRABEGRON [Suspect]
     Active Substance: MIRABEGRON
     Indication: Suicide attempt
     Route: 048
  4. TAMSULOSIN [Suspect]
     Active Substance: TAMSULOSIN
     Indication: Suicide attempt
     Route: 048

REACTIONS (1)
  - Completed suicide [Fatal]
